FAERS Safety Report 9463303 (Version 2)
Quarter: 2013Q4

REPORT INFORMATION
  Report Type: Spontaneous
  Country: AT (occurrence: AT)
  Receive Date: 20130819
  Receipt Date: 20131008
  Transmission Date: 20140711
  Serious: Yes (Hospitalization)
  Sender: FDA-Public Use
  Company Number: AT-BIOGENIDEC-2013BI074501

PATIENT
  Age: 45 Year
  Sex: Female

DRUGS (2)
  1. TYSABRI [Suspect]
     Indication: MULTIPLE SCLEROSIS
     Route: 042
     Dates: start: 200905
  2. 3-4 AMINOPYRIDINE [Concomitant]

REACTIONS (3)
  - Convulsion [Recovered/Resolved]
  - Apathy [Recovered/Resolved]
  - Postictal state [Recovered/Resolved]
